FAERS Safety Report 16635398 (Version 1)
Quarter: 2019Q3

REPORT INFORMATION
  Report Type: Spontaneous
  Country: PT (occurrence: PT)
  Receive Date: 20190726
  Receipt Date: 20190726
  Transmission Date: 20191004
  Serious: Yes (Hospitalization)
  Sender: FDA-Public Use
  Company Number: PT-BAUSCH-BL-2019-021207

PATIENT
  Age: 15 Year
  Sex: Female

DRUGS (5)
  1. ISOTRETINOIN. [Suspect]
     Active Substance: ISOTRETINOIN
     Indication: PSORIASIS
     Dosage: STOPPED AFTER 11 SESSIONS (25/MAR/2015 TO 20/APR/2015)
     Route: 048
     Dates: start: 201502, end: 201504
  2. 8-METHOXSALEN [Suspect]
     Active Substance: METHOXSALEN
     Indication: DERMATOSIS
     Dosage: FINAL DOSE OF 9 J/CM2 STOPPED AFTER 11 SESSIONS (25/MAR/2015 TO 20/APR/2015)
     Route: 048
     Dates: start: 201502, end: 201504
  3. 8-METHOXSALEN [Suspect]
     Active Substance: METHOXSALEN
     Dosage: TOTAL DOSE OF 29.5 J/CM2 STOPPED AFTER 11 SESSIONS (25/MAR/2015 TO 20/APR/2015)
     Route: 048
     Dates: start: 201502, end: 201504
  4. 8-METHOXSALEN [Suspect]
     Active Substance: METHOXSALEN
     Indication: PSORIASIS
     Dosage: INITIAL DOSE OF 1.5 J/CM2 STOPPED AFTER 11 SESSIONS (25/MAR/2015 TO 20/APR/2015)
     Route: 048
     Dates: start: 201502, end: 201504
  5. ISOTRETINOIN. [Suspect]
     Active Substance: ISOTRETINOIN
     Indication: DERMATOSIS

REACTIONS (2)
  - Skin lesion [Recovered/Resolved]
  - Alopecia [Recovered/Resolved]

NARRATIVE: CASE EVENT DATE: 201504
